FAERS Safety Report 7105505-0 (Version None)
Quarter: 2010Q4

REPORT INFORMATION
  Report Type: 
  Country: None (occurrence: None)
  Receive Date: 20101116
  Receipt Date: 20101101
  Transmission Date: 20110411
  Serious: Yes (Other)
  Sender: FDA-Public Use
  Company Number: US-ROCHE-718744

PATIENT
  Sex: Female
  Weight: 77.1 kg

DRUGS (2)
  1. ACCUTANE [Suspect]
     Indication: ACNE
     Dosage: START DATE: SPRING 2000
     Route: 065
     Dates: start: 20000101
  2. ACCUTANE [Suspect]
     Dosage: START DATE: SPRING 2002
     Route: 065
     Dates: start: 20020101

REACTIONS (10)
  - ABDOMINAL MASS [None]
  - ANAEMIA [None]
  - ANAL FISSURE [None]
  - CROHN'S DISEASE [None]
  - GASTROINTESTINAL INJURY [None]
  - GASTROOESOPHAGEAL REFLUX DISEASE [None]
  - HAEMORRHOIDS [None]
  - HIATUS HERNIA [None]
  - INFLAMMATORY BOWEL DISEASE [None]
  - INTESTINAL OBSTRUCTION [None]
